FAERS Safety Report 15823662 (Version 2)
Quarter: 2019Q1

REPORT INFORMATION
  Report Type: Spontaneous
  Country: US (occurrence: US)
  Receive Date: 20190114
  Receipt Date: 20190307
  Transmission Date: 20190417
  Serious: No
  Sender: FDA-Public Use
  Company Number: US-ACTELION-A-NJ2018-183824

PATIENT
  Age: 72 Year
  Sex: Female

DRUGS (3)
  1. OPSUMIT [Suspect]
     Active Substance: MACITENTAN
     Indication: PULMONARY ARTERIAL HYPERTENSION
     Dosage: 10 MG, QD
     Route: 048
     Dates: start: 20181115
  2. ADCIRCA [Concomitant]
     Active Substance: TADALAFIL
  3. HCTZ [Concomitant]
     Active Substance: HYDROCHLOROTHIAZIDE

REACTIONS (6)
  - Nasal congestion [Unknown]
  - Drug ineffective [Unknown]
  - Sinusitis [Recovered/Resolved]
  - Peripheral swelling [Recovered/Resolved]
  - Oxygen saturation decreased [Unknown]
  - Dyspnoea [Unknown]

NARRATIVE: CASE EVENT DATE: 20181214
